FAERS Safety Report 10623713 (Version 1)
Quarter: 2014Q4

REPORT INFORMATION
  Report Type: Spontaneous
  Country: CH (occurrence: CH)
  Receive Date: 20141203
  Receipt Date: 20141203
  Transmission Date: 20150529
  Serious: Yes (Death, Hospitalization)
  Sender: FDA-Public Use
  Company Number: CH-BAYER-2014-171633

PATIENT
  Age: 48 Year
  Sex: Male

DRUGS (11)
  1. REMERON [Concomitant]
     Active Substance: MIRTAZAPINE
     Dosage: 30 MG, UNK
  2. NEXAVAR [Suspect]
     Active Substance: SORAFENIB
     Indication: HEPATIC CANCER METASTATIC
     Dosage: 200 MG, BID
     Route: 048
     Dates: start: 20141022, end: 20141028
  3. TRIATEC [Concomitant]
     Active Substance: RAMIPRIL
     Dosage: 5 MG, UNK
  4. TEMESTA [Concomitant]
     Active Substance: LORAZEPAM
     Dosage: 0.5 MG, UNK
  5. TOREM [Concomitant]
     Active Substance: TORSEMIDE
     Dosage: 10 MG, UNK
  6. PANTOZOL [Concomitant]
     Active Substance: PANTOPRAZOLE SODIUM
     Dosage: 40 MG, UNK
  7. AMLODIPIN [Concomitant]
     Active Substance: AMLODIPINE BESYLATE
     Dosage: 5 MG, UNK
  8. DUPHALAC [Concomitant]
     Active Substance: LACTULOSE
  9. CONCOR [Concomitant]
     Active Substance: BISOPROLOL FUMARATE
     Dosage: 5 MG, UNK
  10. ALDACTONE [Concomitant]
     Active Substance: SPIRONOLACTONE
     Dosage: 50 MG, UNK
  11. ZEFFIX [Concomitant]
     Active Substance: LAMIVUDINE
     Dosage: 100 MG, UNK

REACTIONS (5)
  - Hepatic failure [Fatal]
  - Acute kidney injury [Fatal]
  - Gastrointestinal haemorrhage [Unknown]
  - Jaundice [Fatal]
  - Diarrhoea [Recovered/Resolved]

NARRATIVE: CASE EVENT DATE: 201410
